FAERS Safety Report 5464811-6 (Version None)
Quarter: 2007Q3

REPORT INFORMATION
  Report Type: 
  Country: None (occurrence: None)
  Receive Date: 20070820
  Receipt Date: 20070717
  Transmission Date: 20080115
  Serious: No
  Sender: FDA-Public Use
  Company Number: TPA2007A01323

PATIENT
  Age: 56 Year
  Sex: Male
  Weight: 90.7194 kg

DRUGS (2)
  1. ROZEREM [Suspect]
     Indication: INSOMNIA
     Dosage: 8 MG, QHS, PER ORAL
     Route: 048
     Dates: start: 20070501, end: 20070501
  2. LIPITOR [Concomitant]

REACTIONS (3)
  - INITIAL INSOMNIA [None]
  - MIDDLE INSOMNIA [None]
  - SOMNOLENCE [None]
